FAERS Safety Report 10196812 (Version 4)
Quarter: 2014Q2

REPORT INFORMATION
  Report Type: Spontaneous
  Country: JP (occurrence: JP)
  Receive Date: 20140527
  Receipt Date: 20140620
  Transmission Date: 20141212
  Serious: Yes (Life-Threatening, Hospitalization, Other)
  Sender: FDA-Public Use
  Company Number: JP-PFIZER INC-2014105905

PATIENT
  Age: 65 Year
  Sex: Female
  Weight: 36.5 kg

DRUGS (8)
  1. VFEND [Suspect]
     Indication: KERATITIS FUNGAL
     Dosage: 150 MG, 2X/DAY IN THE MORNING AND IN THE EVENING
     Route: 048
     Dates: start: 20140407, end: 20140415
  2. VFEND [Suspect]
     Indication: KERATITIS FUNGAL
     Dosage: EYE DROP (RIGHT) EVERY AN HOUR
     Route: 047
     Dates: start: 20140403, end: 20140415
  3. PREDNISOLONE [Suspect]
     Indication: PROPHYLAXIS
     Dosage: 20 MG IN THE MORNING AND 10 MG AT NOON DAILY
     Route: 048
     Dates: start: 20140311, end: 20140317
  4. PREDNISOLONE [Suspect]
     Dosage: 20 MG, 1X/DAY
     Route: 048
     Dates: start: 20140318, end: 20140324
  5. PREDNISOLONE [Suspect]
     Dosage: 10 MG, 1X/DAY
     Route: 048
     Dates: start: 20140325, end: 20140401
  6. BAYASPIRIN [Suspect]
     Dosage: 100 MG, 1X/DAY
     Route: 048
  7. FUNGUARD [Concomitant]
     Indication: CANDIDA INFECTION
     Dosage: EYE DROP (RIGHT) EVERY AN HOUR
     Route: 047
     Dates: start: 20140403
  8. PIMARICIN [Concomitant]
     Indication: CANDIDA INFECTION
     Dosage: EYE OINTMENT (RIGHT) ONCE BEFORE BEDTIME
     Route: 047
     Dates: start: 20140403

REACTIONS (2)
  - Cerebral infarction [Unknown]
  - Gastrointestinal perforation [Not Recovered/Not Resolved]
